FAERS Safety Report 16749019 (Version 1)
Quarter: 2019Q3

REPORT INFORMATION
  Report Type: Spontaneous
  Country: FR (occurrence: FR)
  Receive Date: 20190828
  Receipt Date: 20190828
  Transmission Date: 20191005
  Serious: Yes (Hospitalization)
  Sender: FDA-Public Use
  Company Number: FR-TEVA-2019-FR-1097685

PATIENT
  Age: 54 Year
  Sex: Male

DRUGS (2)
  1. RIBAVIRINE [Suspect]
     Active Substance: RIBAVIRIN
     Indication: VIRAL HEPATITIS CARRIER
     Route: 048
     Dates: start: 20140415, end: 20140930
  2. SOVALDI [Suspect]
     Active Substance: SOFOSBUVIR
     Indication: VIRAL HEPATITIS CARRIER
     Route: 048
     Dates: start: 20140415, end: 20140930

REACTIONS (1)
  - Pulmonary arterial hypertension [Not Recovered/Not Resolved]

NARRATIVE: CASE EVENT DATE: 201701
